FAERS Safety Report 5040748-1 (Version None)
Quarter: 2006Q3

REPORT INFORMATION
  Report Type: 
  Country: None (occurrence: None)
  Receive Date: 20060703
  Receipt Date: 20060620
  Transmission Date: 20061208
  Serious: Yes (Hospitalization)
  Sender: FDA-Public Use
  Company Number: PHHO2006HU09963

PATIENT
  Age: 23 Month
  Sex: Male
  Weight: 12.8 kg

DRUGS (1)
  1. ELIDEL [Suspect]
     Indication: DERMATITIS ATOPIC
     Dosage: APPLIED TWICE DAILY
     Route: 061
     Dates: start: 20050321

REACTIONS (3)
  - BENIGN NEOPLASM OF SKIN [None]
  - EPITHELIOMA [None]
  - SURGERY [None]
